FAERS Safety Report 10677329 (Version 2)
Quarter: 2015Q1

REPORT INFORMATION
  Report Type: Report from Study
  Country: KR (occurrence: KR)
  Receive Date: 20141226
  Receipt Date: 20150105
  Transmission Date: 20150720
  Serious: Yes (Hospitalization)
  Sender: FDA-Public Use
  Company Number: KR-B.I. PHARMACEUTICALS,INC./RIDGEFIELD-2014-BI-61838BI

PATIENT
  Age: 53 Year
  Sex: Male
  Weight: 79 kg

DRUGS (9)
  1. AFATINIB [Suspect]
     Active Substance: AFATINIB
     Indication: ADENOCARCINOMA
     Dosage: 40 MG
     Route: 048
     Dates: start: 20140114, end: 20141116
  2. TANTUM [Concomitant]
     Active Substance: BENZYDAMINE HYDROCHLORIDE
     Indication: INFECTION PROPHYLAXIS
     Dosage: ROUTE: GARGLE
     Route: 050
     Dates: start: 20140311
  3. ELCOM [Concomitant]
     Indication: RASH
     Route: 061
     Dates: start: 20141119
  4. ULTRACET ER SEMI [Concomitant]
     Indication: MUSCULOSKELETAL PAIN
     Dosage: 360 MG
     Route: 048
     Dates: start: 20141119
  5. IR CODON [Concomitant]
     Indication: PAIN IN EXTREMITY
     Dosage: 5 MG
     Route: 048
     Dates: start: 20141119
  6. MINOCIN [Concomitant]
     Active Substance: MINOCYCLINE HYDROCHLORIDE
     Indication: RASH
     Dosage: 50 MG
     Route: 048
     Dates: start: 20140128
  7. STOGAR [Concomitant]
     Indication: PROPHYLAXIS AGAINST GASTROINTESTINAL ULCER
     Dosage: 10 MG
     Route: 048
     Dates: start: 20140128
  8. NORSPAN [Concomitant]
     Active Substance: BUPRENORPHINE
     Indication: PAIN IN EXTREMITY
     Dosage: 5 MG
     Route: 061
     Dates: start: 20141217
  9. TARGIN [Concomitant]
     Active Substance: NALOXONE HYDROCHLORIDE\OXYCODONE HYDROCHLORIDE
     Indication: PAIN IN EXTREMITY
     Dosage: DOSE PER APPLICATION AND DAILY DOSE: 10/5 MG
     Route: 048
     Dates: start: 20141119

REACTIONS (1)
  - Musculoskeletal pain [Recovered/Resolved]

NARRATIVE: CASE EVENT DATE: 20141119
